FAERS Safety Report 7983205-2 (Version None)
Quarter: 2011Q4

REPORT INFORMATION
  Report Type: 
  Country: None (occurrence: None)
  Receive Date: 20111215
  Receipt Date: 20111208
  Transmission Date: 20120403
  Serious: Yes (Other)
  Sender: FDA-Public Use
  Company Number: JP-MEDIMMUNE-MEDI-0014095

PATIENT
  Sex: Female

DRUGS (1)
  1. SYNAGIS [Suspect]
     Route: 030
     Dates: start: 20111119, end: 20111119

REACTIONS (2)
  - HAEMATOCHEZIA [None]
  - DIARRHOEA [None]
